FAERS Safety Report 8961272 (Version 1)
Quarter: 2012Q4

REPORT INFORMATION
  Report Type: Report from Study
  Country: TR (occurrence: TR)
  Receive Date: 20121212
  Receipt Date: 20121212
  Transmission Date: 20130627
  Serious: Yes (Death, Other)
  Sender: FDA-Public Use
  Company Number: TR-PFIZER INC-2012311320

PATIENT
  Age: 53 Year
  Sex: Male

DRUGS (22)
  1. SIROLIMUS [Suspect]
     Indication: PROPHYLAXIS AGAINST RENAL TRANSPLANT REJECTION
     Dosage: 9 mg, 1x/day
     Route: 048
     Dates: start: 20040216
  2. SIROLIMUS [Suspect]
     Dosage: 3 mg, 1x/day
     Dates: start: 20040219
  3. SIROLIMUS [Suspect]
     Dosage: 1 mg, daily
     Route: 048
     Dates: start: 20040222
  4. PREDNISOLONE [Suspect]
     Indication: PROPHYLAXIS AGAINST RENAL TRANSPLANT REJECTION
     Dosage: 45 mg, 2x/day
     Route: 048
     Dates: start: 20040218
  5. PREDNISOLONE [Suspect]
     Dosage: 40 mg, 2x/day
     Route: 048
     Dates: start: 20040219
  6. PREDNISOLONE [Suspect]
     Dosage: 35 mg, 2x/day
     Route: 048
     Dates: start: 20040220
  7. PREDNISOLONE [Suspect]
     Dosage: 30 mg, 2x/day
     Route: 048
     Dates: start: 20040221
  8. PREDNISOLONE [Suspect]
     Dosage: 50 mg, 1x/day
     Route: 048
     Dates: start: 20040222
  9. PREDNISOLONE [Suspect]
     Dosage: 40 mg, 1x/day
     Route: 048
     Dates: start: 20040223
  10. PREDNISOLONE [Suspect]
     Dosage: 30 mg, 1x/day
     Route: 048
     Dates: start: 20040224
  11. DACLIZUMAB [Suspect]
     Indication: IMMUNOSUPPRESSANT DRUG THERAPY
     Dosage: 130 mg, single
     Route: 042
     Dates: start: 20040216
  12. DACLIZUMAB [Suspect]
     Dosage: 65 mg, UNK
     Route: 042
     Dates: start: 20040301
  13. MYCOPHENOLATE MOFETIL [Suspect]
     Indication: IMMUNOSUPPRESSANT DRUG THERAPY
     Dosage: 1 g, daily
     Route: 048
     Dates: start: 20040216
  14. PREDNISOLONE [Suspect]
     Indication: PROPHYLAXIS AGAINST RENAL TRANSPLANT REJECTION
     Dosage: 500 mg, 2x/day
     Route: 042
     Dates: start: 20040216
  15. PREDNISOLONE [Suspect]
     Dosage: 125 mg, 2x/day
     Route: 042
     Dates: start: 20040217
  16. ACYCLOVIR [Concomitant]
     Dosage: 800 mg, 2x/day
     Route: 048
     Dates: start: 20040216
  17. ACYCLOVIR [Concomitant]
     Dosage: 400 mg, 2x/day
     Dates: start: 20040217
  18. CEFAZOLIN [Concomitant]
     Dosage: 1 g, 2x/day
     Route: 042
     Dates: start: 20040216, end: 20040220
  19. ISONIAZID [Concomitant]
     Dosage: 100 mg, 1x/day
     Route: 048
     Dates: start: 20040218
  20. ISONIAZID [Concomitant]
     Dosage: 300 mg, 1x/day
     Route: 048
     Dates: start: 20040224
  21. NYSTATINE [Concomitant]
     Dosage: 100000 mg, 4x/day
     Route: 048
     Dates: start: 20040216
  22. SULFAMETHOXAZOLE [Concomitant]
     Dosage: 800 mg, 1x/day
     Route: 048
     Dates: start: 20040216

REACTIONS (3)
  - Hypovolaemic shock [Fatal]
  - Venous haemorrhage [Fatal]
  - Wound infection pseudomonas [Fatal]
